FAERS Safety Report 6810193-4 (Version None)
Quarter: 2010Q2

REPORT INFORMATION
  Report Type: 
  Country: None (occurrence: None)
  Receive Date: 20100630
  Receipt Date: 20100625
  Transmission Date: 20101027
  Serious: Yes (Hospitalization)
  Sender: FDA-Public Use
  Company Number: CA-MERCK-1006USA04043

PATIENT
  Age: 56 Year
  Sex: Female

DRUGS (8)
  1. FOSAMAX [Suspect]
     Route: 048
  2. CALCIUM (UNSPECIFIED) AND VITAMIN D (UNSPECIFIED) [Suspect]
     Route: 065
  3. DIOVAN [Suspect]
     Route: 065
  4. FERROUS SULFATE [Suspect]
     Route: 065
  5. FOLIC ACID [Suspect]
     Route: 065
  6. REMICADE [Suspect]
     Route: 042
  7. RESTORIL [Suspect]
     Route: 065
  8. TOFRANIL [Concomitant]
     Route: 065

REACTIONS (1)
  - INTESTINAL RESECTION [None]
